FAERS Safety Report 12136217 (Version 1)
Quarter: 2016Q1

REPORT INFORMATION
  Report Type: Spontaneous
  Country: FR (occurrence: FR)
  Receive Date: 20160302
  Receipt Date: 20160302
  Transmission Date: 20160526
  Serious: Yes (Other)
  Sender: FDA-Public Use
  Company Number: FR-CIPLA LTD.-2016FR01591

PATIENT

DRUGS (5)
  1. ZIDOVUDINE. [Suspect]
     Active Substance: ZIDOVUDINE
     Dosage: PREPARTUM
     Route: 064
  2. ABACAVIR. [Suspect]
     Active Substance: ABACAVIR
     Indication: HIV INFECTION
     Route: 064
  3. ZIDOVUDINE. [Suspect]
     Active Substance: ZIDOVUDINE
     Indication: HIV INFECTION
     Dosage: PREPARTUM AT ONSET
     Route: 064
  4. ZIDOVUDINE. [Suspect]
     Active Substance: ZIDOVUDINE
     Dosage: POSTPARTUM AT 6 WEEKS
     Route: 065
  5. NEVIRAPINE. [Suspect]
     Active Substance: NEVIRAPINE
     Indication: HIV INFECTION
     Route: 064

REACTIONS (2)
  - Astrocytoma malignant [Unknown]
  - Foetal exposure during pregnancy [Unknown]
